FAERS Safety Report 23488641 (Version 1)
Quarter: 2024Q1

REPORT INFORMATION
  Report Type: Spontaneous
  Country: JP (occurrence: JP)
  Receive Date: 20240206
  Receipt Date: 20240206
  Transmission Date: 20240410
  Serious: Yes (Other)
  Sender: FDA-Public Use
  Company Number: JP-TAKEDA-2024TUS010850

PATIENT
  Age: 26 Year
  Sex: Male

DRUGS (4)
  1. LIALDA [Suspect]
     Active Substance: MESALAMINE
     Indication: Inflammatory bowel disease
     Dosage: UNK
     Route: 048
  2. PENTASA [Concomitant]
     Active Substance: MESALAMINE
     Indication: Inflammatory bowel disease
     Dosage: UNK
     Route: 054
  3. BUDESONIDE [Concomitant]
     Active Substance: BUDESONIDE
     Indication: Inflammatory bowel disease
     Dosage: UNK
     Route: 065
  4. PREDONINE [Concomitant]
     Active Substance: PREDNISOLONE
     Indication: Inflammatory bowel disease
     Dosage: UNK
     Route: 065

REACTIONS (4)
  - Melaena [Unknown]
  - Colitis ulcerative [Unknown]
  - Abdominal pain [Unknown]
  - Diarrhoea [Unknown]
